FAERS Safety Report 13440236 (Version 1)
Quarter: 2017Q2

REPORT INFORMATION
  Report Type: Spontaneous
  Country: CA (occurrence: CA)
  Receive Date: 20170413
  Receipt Date: 20170413
  Transmission Date: 20170830
  Serious: Yes (Other)
  Sender: FDA-Public Use
  Company Number: CA-TEVA-757549ACC

PATIENT
  Age: 75 Year
  Sex: Male

DRUGS (7)
  1. TEVA-VENLAFAXINE XR [Suspect]
     Active Substance: VENLAFAXINE HYDROCHLORIDE
     Dosage: EXTENDED RELEASE; IN THE MORNING
     Dates: start: 20170403
  2. TEVA-VENLAFAXINE XR [Suspect]
     Active Substance: VENLAFAXINE HYDROCHLORIDE
     Dosage: 300 MILLIGRAM DAILY; EXTENDED RELEASE; STRENGTH: 150MG; 2 TABLETS OF 150MG
     Dates: start: 201608
  3. TEVA-VENLAFAXINE XR [Suspect]
     Active Substance: VENLAFAXINE HYDROCHLORIDE
     Dosage: EXTENDED RELEASE; STRENGTH: 75MG;TOTAL DOSE: 225MG (1 TABLET OF 150MG + 1 TABLET OF 75MG)
  4. TEVA-VENLAFAXINE XR [Suspect]
     Active Substance: VENLAFAXINE HYDROCHLORIDE
     Dosage: 150 MILLIGRAM DAILY; EXTENDED RELEASE; STRENGTH: 150MG; 1 TABLET OF 150MG
  5. TEVA-VENLAFAXINE XR [Suspect]
     Active Substance: VENLAFAXINE HYDROCHLORIDE
     Indication: PSYCHIATRIC SYMPTOM
     Dosage: EXTENDED RELEASE; STRENGTH: 150MG; FORGOT TO TAKE FOR 2 WEEKS
     Dates: end: 201608
  6. TEVA-VENLAFAXINE XR [Suspect]
     Active Substance: VENLAFAXINE HYDROCHLORIDE
     Dosage: 300 MILLIGRAM DAILY; EXTENDED RELEASE
  7. TEVA-VENLAFAXINE XR [Suspect]
     Active Substance: VENLAFAXINE HYDROCHLORIDE
     Dosage: EXTENDED RELEASE; STRENGTH: 150MG;TOTAL DOSE: 225MG (1 TABLET OF 150MG + 1 TABLET OF 75MG)

REACTIONS (17)
  - Hallucination [Recovering/Resolving]
  - Musculoskeletal chest pain [Unknown]
  - Intentional product misuse [Unknown]
  - Diverticulitis [Unknown]
  - Tremor [Recovering/Resolving]
  - Impatience [Recovering/Resolving]
  - Feeling abnormal [Recovering/Resolving]
  - Influenza [Unknown]
  - Night sweats [Recovering/Resolving]
  - Withdrawal syndrome [Recovering/Resolving]
  - Abnormal dreams [Recovering/Resolving]
  - Gastrointestinal disorder [Recovering/Resolving]
  - Memory impairment [Unknown]
  - Chills [Recovering/Resolving]
  - Hyperhidrosis [Recovering/Resolving]
  - Pain [Recovering/Resolving]
  - Anxiety [Recovering/Resolving]

NARRATIVE: CASE EVENT DATE: 2016
